FAERS Safety Report 23869905 (Version 1)
Quarter: 2024Q2

REPORT INFORMATION
  Report Type: Spontaneous
  Country: US (occurrence: US)
  Receive Date: 20240517
  Receipt Date: 20240517
  Transmission Date: 20240716
  Serious: No
  Sender: FDA-Public Use
  Company Number: US-002147023-NVSC2024US104264

PATIENT
  Sex: Female

DRUGS (1)
  1. LEQVIO [Suspect]
     Active Substance: INCLISIRAN SODIUM
     Indication: Low density lipoprotein
     Dosage: 284 MG (INITIAL DOSE, 3 MONTH DOSE, THEN EVERY 6 MONTHS)
     Route: 058
     Dates: start: 20240402

REACTIONS (1)
  - Therapeutic response decreased [Unknown]
